FAERS Safety Report 10086992 (Version 2)
Quarter: 2014Q2

REPORT INFORMATION
  Report Type: Spontaneous
  Country: GB (occurrence: GB)
  Receive Date: 20140418
  Receipt Date: 20140418
  Transmission Date: 20141212
  Serious: Yes (Life-Threatening, Hospitalization, Other)
  Sender: FDA-Public Use
  Company Number: GB-PFIZER INC-2014061517

PATIENT
  Age: 55 Year
  Sex: Male

DRUGS (14)
  1. AXITINIB [Suspect]
     Indication: METASTATIC RENAL CELL CARCINOMA
     Dosage: 5 MG, 2X/DAY
     Route: 048
     Dates: start: 20131216, end: 20140117
  2. OMEPRAZOLE [Concomitant]
     Dosage: 40 MG, 2X/DAY
     Route: 048
     Dates: start: 20110622
  3. PENICILLIN-V [Concomitant]
     Dosage: 500 MG, 2X/DAY
     Route: 048
     Dates: start: 20110622
  4. IMODIUM ^JANSSEN^ [Concomitant]
     Dosage: 2 MG, 1X/DAY, NIGHTLY
     Route: 048
     Dates: start: 20111006
  5. MAXIJUL [Concomitant]
     Dosage: 20 MG, 2X/DAY
     Dates: start: 20120113
  6. URSODEOXYCHOLIC ACID [Concomitant]
     Dosage: 250 MG, 3X/DAY
     Route: 048
     Dates: start: 20120113
  7. ALU-CAP [Concomitant]
     Dosage: 2 UNK, 3X/DAY
     Route: 048
     Dates: start: 20120516
  8. CREON [Concomitant]
     Dosage: 80000 UNK, 3X/DAY
     Dates: start: 20121128
  9. HYDROCORTISONE [Concomitant]
     Dosage: 10 MG, 2X/DAY
     Route: 048
     Dates: start: 20130808
  10. HYDROCORTISONE [Concomitant]
     Dosage: 5 MG, UNK NIGHTLY
     Route: 048
     Dates: start: 20130808
  11. CELLUVISC [Concomitant]
     Dosage: 1 DF, 4X/DAY
     Route: 047
     Dates: start: 20130828
  12. RENAVIT [Concomitant]
     Dosage: 1 DF, 1X/DAY
     Route: 048
     Dates: start: 20131014
  13. COSMOFER [Concomitant]
     Dosage: 25 MG, UNK
     Route: 042
     Dates: start: 20131115
  14. COSMOFER [Concomitant]
     Dosage: 775 MG, UNK
     Route: 042
     Dates: start: 20131115

REACTIONS (3)
  - Gastrointestinal haemorrhage [Recovered/Resolved]
  - Loss of consciousness [Recovered/Resolved]
  - Haemorrhage [Recovered/Resolved]
